FAERS Safety Report 8655196 (Version 3)
Quarter: 2013Q1

REPORT INFORMATION
  Report Type: Spontaneous
  Country: US (occurrence: US)
  Receive Date: 20120709
  Receipt Date: 20130125
  Transmission Date: 20140127
  Serious: Yes (Other)
  Sender: FDA-Public Use
  Company Number: US-ASTRAZENECA-2012SE44611

PATIENT
  Age: 48 Year
  Sex: Female

DRUGS (1)
  1. NEXIUM [Suspect]
     Indication: ULCER
     Route: 048

REACTIONS (4)
  - Deafness [Unknown]
  - Systemic lupus erythematosus [Unknown]
  - Ulcer haemorrhage [Unknown]
  - Drug dose omission [Unknown]
